FAERS Safety Report 18454823 (Version 2)
Quarter: 2020Q4

REPORT INFORMATION
  Report Type: Report from Study
  Country: US (occurrence: US)
  Receive Date: 20201103
  Receipt Date: 20201110
  Transmission Date: 20210114
  Serious: Yes (Other)
  Sender: FDA-Public Use
  Company Number: US-BRISTOL-MYERS SQUIBB COMPANY-BMS-2020-091249

PATIENT
  Age: 20 Year
  Sex: Female

DRUGS (5)
  1. RETROVIR [Suspect]
     Active Substance: ZIDOVUDINE
     Indication: HIV INFECTION
     Dosage: 1 MILLIGRAM/KILOGRAM, QH
     Route: 042
     Dates: start: 20200729, end: 20200729
  2. ATAZANAVIR SULFATE. [Suspect]
     Active Substance: ATAZANAVIR SULFATE
     Indication: HIV INFECTION
     Dosage: 300 MILLIGRAM, QD
     Route: 048
     Dates: start: 20191127, end: 20200521
  3. NORVIR [Suspect]
     Active Substance: RITONAVIR
     Indication: HIV INFECTION
     Dosage: 100 MILLIGRAM, QD
     Route: 048
     Dates: start: 20191127
  4. TRUVADA [Suspect]
     Active Substance: EMTRICITABINE\TENOFOVIR DISOPROXIL FUMARATE
     Indication: HIV INFECTION
     Dosage: 500 MILLIGRAM, QD
     Route: 048
     Dates: start: 20191127
  5. ATAZANAVIR SULFATE. [Suspect]
     Active Substance: ATAZANAVIR SULFATE
     Dosage: 400 MILLIGRAM, QD
     Route: 048
     Dates: start: 20200522

REACTIONS (3)
  - Beta haemolytic streptococcal infection [Unknown]
  - Live birth [Unknown]
  - Maternal exposure during pregnancy [Recovered/Resolved]

NARRATIVE: CASE EVENT DATE: 2020
